FAERS Safety Report 4980863-1 (Version None)
Quarter: 2006Q2

REPORT INFORMATION
  Report Type: 
  Country: None (occurrence: None)
  Receive Date: 20060424
  Receipt Date: 20060131
  Transmission Date: 20061013
  Serious: Yes (Disabling)
  Sender: FDA-Public Use
  Company Number: US-MERCK-0602USA00097

PATIENT
  Age: 60 Year
  Sex: Male

DRUGS (4)
  1. VIOXX [Suspect]
     Indication: ARTHRITIS
     Route: 048
     Dates: start: 19990101, end: 20040101
  2. COMBIVIR [Concomitant]
     Route: 048
  3. BACTRIM [Concomitant]
     Route: 048
  4. [THERAPY UNSPECIFIED] [Concomitant]
     Route: 048

REACTIONS (5)
  - ACTINIC KERATOSIS [None]
  - ANHEDONIA [None]
  - CEREBROVASCULAR ACCIDENT [None]
  - LIFE EXPECTANCY SHORTENED [None]
  - PAIN [None]
